FAERS Safety Report 13444123 (Version 5)
Quarter: 2017Q3

REPORT INFORMATION
  Report Type: Report from Study
  Country: JP (occurrence: JP)
  Receive Date: 20170414
  Receipt Date: 20170731
  Transmission Date: 20171127
  Serious: Yes (Death, Life-Threatening)
  Sender: FDA-Public Use
  Company Number: JP-B.I. PHARMACEUTICALS,INC./RIDGEFIELD-2017-NB-002049

PATIENT
  Age: 81 Year
  Sex: Female

DRUGS (1)
  1. PRIZBIND [Suspect]
     Active Substance: IDARUCIZUMAB
     Indication: PROCOAGULANT THERAPY
     Route: 065
     Dates: start: 20170411, end: 20170411

REACTIONS (3)
  - Multiple organ dysfunction syndrome [Fatal]
  - Shock haemorrhagic [Fatal]
  - Lower gastrointestinal haemorrhage [Fatal]

NARRATIVE: CASE EVENT DATE: 20170411
